FAERS Safety Report 6732499-X (Version None)
Quarter: 2010Q2

REPORT INFORMATION
  Report Type: 
  Country: None (occurrence: None)
  Receive Date: 20100519
  Receipt Date: 20100514
  Transmission Date: 20101027
  Serious: Yes (Other)
  Sender: FDA-Public Use
  Company Number: US-ELI_LILLY_AND_COMPANY-US201005004243

PATIENT
  Sex: Male

DRUGS (8)
  1. HUMALOG [Suspect]
     Indication: DIABETES MELLITUS
     Dosage: UNK, AS NEEDED
     Dates: start: 20000101
  2. HUMALOG [Suspect]
     Dosage: 6 U, OTHER
     Dates: start: 20000101
  3. LANTUS [Concomitant]
  4. DEXAMETHASONE TAB [Concomitant]
  5. LASIX [Concomitant]
     Indication: SWELLING
  6. LOVASTIN [Concomitant]
     Indication: BLOOD CHOLESTEROL ABNORMAL
  7. PRAZOSIN HCL [Concomitant]
     Indication: BLOOD DISORDER
  8. CREON [Concomitant]
     Indication: PANCREATITIS

REACTIONS (3)
  - BLOOD GLUCOSE INCREASED [None]
  - DRUG INEFFECTIVE [None]
  - LEUKAEMIA [None]
